FAERS Safety Report 20466561 (Version 2)
Quarter: 2022Q1

REPORT INFORMATION
  Report Type: Spontaneous
  Country: NZ (occurrence: NZ)
  Receive Date: 20220213
  Receipt Date: 20220316
  Transmission Date: 20220423
  Serious: Yes (Life-Threatening)
  Sender: FDA-Public Use
  Company Number: NZ-BEH-2022141847

PATIENT
  Age: 8 Month
  Sex: Male
  Weight: 7.7 kg

DRUGS (8)
  1. PRIVIGEN [Suspect]
     Active Substance: HUMAN IMMUNOGLOBULIN G
     Indication: Kawasaki^s disease
     Dosage: 15 GRAM
     Route: 042
     Dates: start: 20220202, end: 20220202
  2. ACETAMINOPHEN [Concomitant]
     Active Substance: ACETAMINOPHEN
     Indication: Pain
     Dosage: 110 MILLIGRAM
     Route: 048
     Dates: start: 20220129
  3. ACETAMINOPHEN [Concomitant]
     Active Substance: ACETAMINOPHEN
     Indication: Pyrexia
     Dosage: 110 MILLIGRAM
     Dates: start: 20220202
  4. HEPARIN SODIUM [Concomitant]
     Active Substance: HEPARIN SODIUM
     Indication: Anticoagulant therapy
     Dosage: 1 MILLILITER
     Route: 042
     Dates: start: 20220202
  5. SORBOLENE [Concomitant]
     Indication: Rash
     Dosage: UNK
     Route: 061
     Dates: start: 20220130
  6. HYDROCORTISONE ACETATE [Concomitant]
     Active Substance: HYDROCORTISONE ACETATE
     Indication: Rash
     Dosage: UNK
     Route: 061
     Dates: start: 20220130
  7. CLINDAMYCIN [Concomitant]
     Active Substance: CLINDAMYCIN
     Indication: Infection
     Dosage: 95 MILLIGRAM
     Route: 042
     Dates: start: 20220131
  8. CEFOTAXIME [Concomitant]
     Active Substance: CEFOTAXIME SODIUM
     Indication: Infection
     Dosage: 370 MILLIGRAM
     Route: 042
     Dates: start: 20220201

REACTIONS (7)
  - Tachycardia [Recovered/Resolved]
  - Tachypnoea [Recovered/Resolved]
  - Somnolence [Recovered/Resolved]
  - Irritability [Recovered/Resolved]
  - Pyrexia [Recovered/Resolved]
  - Circulatory collapse [Recovered/Resolved]
  - Hypertension [Recovered/Resolved]

NARRATIVE: CASE EVENT DATE: 20220202
